FAERS Safety Report 13832450 (Version 1)
Quarter: 2017Q3

REPORT INFORMATION
  Report Type: Spontaneous
  Country: US (occurrence: US)
  Receive Date: 20170803
  Receipt Date: 20170803
  Transmission Date: 20171127
  Serious: Yes (Life-Threatening, Hospitalization)
  Sender: FDA-Public Use
  Company Number: None

PATIENT
  Age: 31 Year
  Sex: Female
  Weight: 69.75 kg

DRUGS (3)
  1. SIMPONI [Suspect]
     Active Substance: GOLIMUMAB
     Indication: COLITIS ULCERATIVE
     Dosage: ?          OTHER FREQUENCY:EVERY TWO WEEKS;?
     Route: 058
     Dates: start: 20150715, end: 20150913
  2. MERCAPTOPURINE. [Concomitant]
     Active Substance: MERCAPTOPURINE
  3. LIALDA [Concomitant]
     Active Substance: MESALAMINE

REACTIONS (8)
  - Chest discomfort [None]
  - Dizziness [None]
  - Histamine intolerance [None]
  - Quality of life decreased [None]
  - Feeling hot [None]
  - Hypersensitivity [None]
  - Flushing [None]
  - Throat tightness [None]

NARRATIVE: CASE EVENT DATE: 20150813
